FAERS Safety Report 23226089 (Version 1)
Quarter: 2023Q4

REPORT INFORMATION
  Report Type: Spontaneous
  Country: US (occurrence: US)
  Receive Date: 20231124
  Receipt Date: 20231124
  Transmission Date: 20240110
  Serious: No
  Sender: FDA-Public Use
  Company Number: US-BRISTOL-MYERS SQUIBB COMPANY-2023-169739

PATIENT
  Age: 69 Year
  Sex: Male
  Weight: 101.6 kg

DRUGS (1)
  1. ONUREG [Suspect]
     Active Substance: AZACITIDINE
     Indication: Myeloid leukaemia
     Dosage: 2WKSON,2WKSOFF
     Route: 048

REACTIONS (2)
  - Nausea [Not Recovered/Not Resolved]
  - Eating disorder [Not Recovered/Not Resolved]
